FAERS Safety Report 7254645-4 (Version None)
Quarter: 2011Q1

REPORT INFORMATION
  Report Type: 
  Country: None (occurrence: None)
  Receive Date: 20110129
  Receipt Date: 20100419
  Transmission Date: 20110831
  Serious: No
  Sender: FDA-Public Use
  Company Number: US-ABBOTT-10P-163-0639631-00

PATIENT
  Age: 40 Year
  Sex: Female

DRUGS (8)
  1. DARVOCET-N 100 [Concomitant]
     Indication: PAIN
     Route: 048
  2. SOMA [Concomitant]
     Indication: PRODUCT USED FOR UNKNOWN INDICATION
     Dosage: AT HOUR OF SLEEP
     Route: 048
  3. HUMIRA [Suspect]
     Indication: CROHN'S DISEASE
     Route: 058
     Dates: start: 20100413
  4. XANAX [Concomitant]
     Indication: PRODUCT USED FOR UNKNOWN INDICATION
     Route: 048
  5. VP SHOT [Concomitant]
     Indication: INTRACRANIAL PRESSURE INCREASED
  6. OXYCONTIN [Concomitant]
     Indication: PAIN
     Route: 048
  7. VP SHOT [Concomitant]
     Indication: MIGRAINE
  8. HUMIRA [Suspect]
     Indication: ANKYLOSING SPONDYLITIS

REACTIONS (2)
  - VULVOVAGINAL PAIN [None]
  - HEADACHE [None]
